FAERS Safety Report 5495091-3 (Version None)
Quarter: 2007Q4

REPORT INFORMATION
  Report Type: 
  Country: None (occurrence: None)
  Receive Date: 20071024
  Receipt Date: 20071019
  Transmission Date: 20080405
  Serious: Yes (Hospitalization, Other)
  Sender: FDA-Public Use
  Company Number: US-ALLERGAN-0711560US

PATIENT

DRUGS (2)
  1. BOTOX [Suspect]
     Indication: CEREBRAL PALSY
     Dosage: 1370 UNITS, SINGLE
     Route: 030
     Dates: start: 20070918, end: 20070918
  2. BOTOX [Suspect]
     Indication: MUSCLE SPASTICITY

REACTIONS (8)
  - ABDOMINAL PAIN [None]
  - ASTHENIA [None]
  - DYSPHAGIA [None]
  - INCORRECT DOSE ADMINISTERED [None]
  - MUSCULAR WEAKNESS [None]
  - ORAL INTAKE REDUCED [None]
  - PNEUMONIA ASPIRATION [None]
  - WEIGHT DECREASED [None]
